FAERS Safety Report 9252492 (Version 1)
Quarter: 2013Q2

REPORT INFORMATION
  Report Type: Spontaneous
  Country: PL (occurrence: PL)
  Receive Date: 20130424
  Receipt Date: 20130424
  Transmission Date: 20140414
  Serious: Yes (Life-Threatening)
  Sender: FDA-Public Use
  Company Number: PL-PFIZER INC-2013126770

PATIENT
  Age: 38 Year
  Sex: Female
  Weight: 53 kg

DRUGS (3)
  1. CISPLATIN [Suspect]
     Indication: CHEMOTHERAPY
     Dosage: 126.89 MG, 1X/DAY
     Route: 042
     Dates: start: 20130103, end: 20130103
  2. VINORELBINE [Suspect]
     Indication: CHEMOTHERAPY
     Dosage: 47.58 MG, 1X/DAY
     Route: 042
     Dates: start: 20130103, end: 20130103
  3. VINORELBINE [Suspect]
     Dosage: 47.58 MG, 1X/DAY
     Route: 042
     Dates: start: 20130110, end: 20130110

REACTIONS (1)
  - Neutropenia [Unknown]
